FAERS Safety Report 4728497-8 (Version None)
Quarter: 2005Q3

REPORT INFORMATION
  Report Type: 
  Country: None (occurrence: None)
  Receive Date: 20050729
  Receipt Date: 20041019
  Transmission Date: 20060218
  Serious: No
  Sender: FDA-Public Use
  Company Number: 20040600164

PATIENT
  Sex: Female

DRUGS (2)
  1. ZANTAC [Suspect]
     Dosage: 75MG UNKNOWN
     Route: 048
  2. TYLENOL [Suspect]
     Indication: SPINAL OSTEOARTHRITIS
     Dosage: 650MG TWICE PER DAY
     Route: 048
     Dates: start: 20040312

REACTIONS (1)
  - PARAESTHESIA [None]
